FAERS Safety Report 5009279-9 (Version None)
Quarter: 2006Q2

REPORT INFORMATION
  Report Type: 
  Country: None (occurrence: None)
  Receive Date: 20060522
  Receipt Date: 20060509
  Transmission Date: 20061013
  Serious: Yes (Other)
  Sender: FDA-Public Use
  Company Number: CIP06000878

PATIENT
  Age: 68 Year
  Sex: Female
  Weight: 68 kg

DRUGS (1)
  1. ACTONEL [Suspect]
     Indication: OSTEOPOROSIS
     Dosage: 35MG ONCE WEEKLY, ORAL
     Route: 048
     Dates: start: 20030201, end: 20060101

REACTIONS (4)
  - DYSPHAGIA [None]
  - OESOPHAGEAL DISORDER [None]
  - OESOPHAGEAL OEDEMA [None]
  - OESOPHAGEAL STENOSIS [None]
